FAERS Safety Report 19994007 (Version 1)
Quarter: 2021Q4

REPORT INFORMATION
  Report Type: Spontaneous
  Country: CH (occurrence: CH)
  Receive Date: 20211025
  Receipt Date: 20211025
  Transmission Date: 20220303
  Serious: Yes (Hospitalization, Other)
  Sender: FDA-Public Use
  Company Number: None

PATIENT
  Age: 67 Year
  Sex: Female

DRUGS (7)
  1. IBUPROFEN [Suspect]
     Active Substance: IBUPROFEN
     Indication: Back pain
     Dosage: IRFEN  RETARD (IBUPROFEN) 800MG, PERORAL INTAKE AS NEEDED FROM 09.07. UNTIL 12.07.2021. ? ; AS NECES
     Route: 048
     Dates: start: 20210709, end: 20210712
  2. PROLIA [Suspect]
     Active Substance: DENOSUMAB
     Indication: Osteoporotic fracture
     Dosage: PROLIA  (DENOSUMAB) 60MG, SUBCUTANEOUS APPLICATION EVERY 6 MONTHS SINCE 10/2016 , UNIT DOSE : 60 MG
     Route: 058
     Dates: start: 201610
  3. ASPIRIN [Suspect]
     Active Substance: ASPIRIN
     Indication: Product used for unknown indication
     Dosage: 100 MILLIGRAM DAILY; ASPIRIN CARDIO  (ACETYLSALICYLIC ACID) 100MG/DAY PERORAL INTAKE SINCE UNKNOWN D
     Route: 048
  4. Curazink [Concomitant]
     Dosage: 15 MILLIGRAM DAILY; CURAZINK  15MG (ZINC-HISTIDINE COMPLEX) 1-0-0-0
  5. MINERALS\VITAMINS [Concomitant]
     Active Substance: MINERALS\VITAMINS
     Dosage: 1 DOSAGE FORMS DAILY; SUPRADYN  ENERGY (MULTIVITAMIN PREPARATION) 1-0-0-0
     Route: 048
  6. VITAMIN A [Concomitant]
     Active Substance: VITAMIN A
     Dosage: 30000 IU (INTERNATIONAL UNIT) DAILY; VITAMIN A (UNKNOWN MANUFACTURER) 30000 IU CPS. 1-0-0-0
     Route: 048
  7. CALCIUM\CHOLECALCIFEROL [Concomitant]
     Active Substance: CALCIUM\CHOLECALCIFEROL
     Dosage: 1 DOSAGE FORMS DAILY; CALCIUM D3 500/440MG (UNKNOWN MANUFACTURER) 1-0-0-0
     Route: 048

REACTIONS (1)
  - Cutaneous vasculitis [Recovering/Resolving]

NARRATIVE: CASE EVENT DATE: 20210711
